FAERS Safety Report 6424891-8 (Version None)
Quarter: 2009Q4

REPORT INFORMATION
  Report Type: 
  Country: None (occurrence: None)
  Receive Date: 20091103
  Receipt Date: 20091021
  Transmission Date: 20100525
  Serious: Yes (Hospitalization)
  Sender: FDA-Public Use
  Company Number: US-ELI_LILLY_AND_COMPANY-US200910005545

PATIENT
  Sex: Female

DRUGS (2)
  1. FORTEO [Suspect]
     Dates: start: 20090101
  2. DARVOCET [Concomitant]

REACTIONS (5)
  - ABDOMINAL PAIN [None]
  - BACK DISORDER [None]
  - HIP ARTHROPLASTY [None]
  - NIGHT SWEATS [None]
  - WEIGHT DECREASED [None]
